FAERS Safety Report 9840588 (Version 1)
Quarter: 2013Q4

REPORT INFORMATION
  Report Type: Spontaneous
  Country: BR (occurrence: None)
  Receive Date: 20131211
  Receipt Date: 20131211
  Transmission Date: 20140711
  Serious: Yes (Hospitalization)
  Sender: FDA-Public Use
  Company Number: SPV1-2011-01054

PATIENT
  Age: 13 Year
  Sex: Male

DRUGS (1)
  1. ELAPRASE [Suspect]
     Indication: MUCOPOLYSACCHARIDOSIS II
     Dosage: 3 DF, 1X/WEEK, IV DRIP
     Route: 041
     Dates: start: 20100121

REACTIONS (2)
  - Convulsion [None]
  - Blood sodium decreased [None]
